FAERS Safety Report 12140648 (Version 1)
Quarter: 2016Q1

REPORT INFORMATION
  Report Type: Spontaneous
  Country: CA (occurrence: CA)
  Receive Date: 20160303
  Receipt Date: 20160303
  Transmission Date: 20160526
  Serious: Yes (Disabling)
  Sender: FDA-Public Use
  Company Number: CA-ASTRAZENECA-2016SE08060

PATIENT
  Age: 57 Year
  Sex: Male

DRUGS (1)
  1. SYMBICORT [Suspect]
     Active Substance: BUDESONIDE\FORMOTEROL FUMARATE DIHYDRATE
     Indication: ASTHMA
     Dosage: 160MCG/4.5MCG UNKNOWN
     Route: 055
     Dates: start: 20141009, end: 20160111

REACTIONS (3)
  - Blood pressure increased [Recovered/Resolved]
  - Device malfunction [Unknown]
  - Asthma [Recovered/Resolved]
